FAERS Safety Report 9531054 (Version 1)
Quarter: 2013Q2

REPORT INFORMATION
  Report Type: Spontaneous
  Country: GB (occurrence: None)
  Receive Date: 20130426
  Receipt Date: 20130426
  Transmission Date: 20140414
  Serious: Yes (Disabling)
  Sender: FDA-Public Use
  Company Number: E2B_00000671

PATIENT
  Age: 49 Year
  Sex: Female
  Weight: 76 kg

DRUGS (3)
  1. QUETIAPINE (UNKNOWN) [Suspect]
     Indication: SCHIZOAFFECTIVE DISORDER BIPOLAR TYPE
     Route: 048
     Dates: start: 20121228
  2. VALPROATE SEMISODIUM (DEPAKOTE )(UNKNOWN) [Concomitant]
  3. AMISULPRIDE (UNKNOWN)(AMISULPRIDE) [Concomitant]

REACTIONS (1)
  - Oedema [None]
